FAERS Safety Report 8933704 (Version 2)
Quarter: 2013Q4

REPORT INFORMATION
  Report Type: Spontaneous
  Country: CA (occurrence: CA)
  Receive Date: 20121129
  Receipt Date: 20131230
  Transmission Date: 20140711
  Serious: Yes (Other)
  Sender: FDA-Public Use
  Company Number: PHHY2012GB108072

PATIENT
  Age: 21 Year
  Sex: Female

DRUGS (6)
  1. METHYLPHENIDATE [Suspect]
     Indication: ATTENTION DEFICIT/HYPERACTIVITY DISORDER
     Dosage: 72 MG, PER DAY
  2. METHYLPHENIDATE [Suspect]
     Dosage: 54 MG, PER DAY
  3. METHYLPHENIDATE [Suspect]
     Dosage: 18 MG, PER DAY
  4. METHYLPHENIDATE [Suspect]
     Dosage: 10 MG, PER DAY
  5. METHYLPHENIDATE [Suspect]
     Dosage: 72 MG, PER DAY
  6. FLUOXETINE [Concomitant]
     Indication: ATTENTION DEFICIT/HYPERACTIVITY DISORDER
     Dosage: 40 MG, DAILY

REACTIONS (4)
  - Postpartum depression [Recovered/Resolved]
  - Withdrawal syndrome [Recovered/Resolved]
  - Maternal exposure during pregnancy [Unknown]
  - Exposure during breast feeding [Unknown]
